FAERS Safety Report 9861658 (Version 3)
Quarter: 2015Q4

REPORT INFORMATION
  Report Type: Report from Study
  Country: US (occurrence: US)
  Receive Date: 20140203
  Receipt Date: 20151001
  Transmission Date: 20160305
  Serious: Yes (Other)
  Sender: FDA-Public Use
  Company Number: US-ROCHE-1271758

PATIENT
  Age: 40 Year
  Sex: Female
  Weight: 68.1 kg

DRUGS (21)
  1. ASA [Concomitant]
     Active Substance: ASPIRIN
     Route: 065
  2. FISH OIL [Concomitant]
     Active Substance: FISH OIL
  3. METFORMIN HYDROCHLORIDE. [Concomitant]
     Active Substance: METFORMIN HYDROCHLORIDE
     Route: 065
  4. METFORMIN HYDROCHLORIDE. [Concomitant]
     Active Substance: METFORMIN HYDROCHLORIDE
     Route: 065
  5. PHENYLEPHRINE [Concomitant]
     Active Substance: PHENYLEPHRINE\PHENYLEPHRINE HYDROCHLORIDE
     Route: 065
  6. POVIDONE [Concomitant]
     Active Substance: POVIDONE
     Route: 065
  7. LUCENTIS [Suspect]
     Active Substance: RANIBIZUMAB
     Indication: NEOVASCULAR AGE-RELATED MACULAR DEGENERATION
     Dosage: 0.05 ML
     Route: 050
  8. AVASTIN [Suspect]
     Active Substance: BEVACIZUMAB
     Indication: PRODUCT USED FOR UNKNOWN INDICATION
     Route: 050
  9. COZAAR [Concomitant]
     Active Substance: LOSARTAN POTASSIUM
  10. ZADITOR [Concomitant]
     Active Substance: KETOTIFEN FUMARATE
     Dosage: AS NEEDED OU
     Route: 065
  11. POLYTRIM [Concomitant]
     Active Substance: POLYMYXIN B SULFATE\TRIMETHOPRIM SULFATE
     Route: 065
  12. PROPARACAINE [Concomitant]
     Active Substance: PROPARACAINE
     Route: 065
  13. ASPIRIN. [Concomitant]
     Active Substance: ASPIRIN
     Route: 065
  14. TROPICAMIDE. [Concomitant]
     Active Substance: TROPICAMIDE
     Route: 065
  15. LUCENTIS [Suspect]
     Active Substance: RANIBIZUMAB
     Indication: NEOVASCULAR AGE-RELATED MACULAR DEGENERATION
     Dosage: (0.5 MG/0.05 ML), MOST RECENT DOSE
     Route: 050
     Dates: start: 20140109
  16. OFLOXACIN. [Concomitant]
     Active Substance: OFLOXACIN
  17. LUCENTIS [Suspect]
     Active Substance: RANIBIZUMAB
     Indication: CYSTOID MACULAR OEDEMA
     Dosage: RIGHT EYE, 0.5 MG/0.05 ML
     Route: 050
     Dates: start: 20100405
  18. LUCENTIS [Suspect]
     Active Substance: RANIBIZUMAB
     Indication: RETINAL TELANGIECTASIA
     Dosage: 0.05 ML
     Route: 050
  19. TOBRAMYCIN. [Concomitant]
     Active Substance: TOBRAMYCIN
     Dosage: QID FOR SEVERAL DAYS
     Route: 065
  20. BETADINE [Concomitant]
     Active Substance: POVIDONE-IODINE
     Dosage: FLUSH
     Route: 065
  21. CIPROFLOXACIN. [Concomitant]
     Active Substance: CIPROFLOXACIN

REACTIONS (14)
  - Blood glucose increased [Unknown]
  - Visual impairment [Unknown]
  - Eye inflammation [Unknown]
  - Conjunctival hyperaemia [Unknown]
  - Chorioretinal scar [Unknown]
  - Cystoid macular oedema [Unknown]
  - Vision blurred [Unknown]
  - Visual acuity reduced [Not Recovered/Not Resolved]
  - Retinal disorder [Not Recovered/Not Resolved]
  - Metamorphopsia [Unknown]
  - Glaucoma [Unknown]
  - Macular degeneration [Not Recovered/Not Resolved]
  - Conjunctivitis allergic [Unknown]
  - Photopsia [Unknown]

NARRATIVE: CASE EVENT DATE: 20110524
